FAERS Safety Report 9293722 (Version 3)
Quarter: 2013Q4

REPORT INFORMATION
  Report Type: Spontaneous
  Country: GB (occurrence: GB)
  Receive Date: 20130516
  Receipt Date: 20131024
  Transmission Date: 20140711
  Serious: Yes (Death, Hospitalization, Other)
  Sender: FDA-Public Use
  Company Number: GB-INCYTE CORPORATION-2013IN000961

PATIENT
  Age: 63 Year
  Sex: Female

DRUGS (19)
  1. JAKAVI [Suspect]
     Indication: MYELOFIBROSIS
     Dosage: 15 MG, UNK
     Route: 048
     Dates: start: 201208
  2. JAKAVI [Suspect]
     Dosage: UNK UNK, UNK
     Route: 065
     Dates: start: 201303
  3. JAKAVI [Suspect]
     Dosage: 15 MG, BID
     Route: 048
     Dates: end: 20130401
  4. WARFARIN [Concomitant]
  5. CLARITHROMYCIN [Concomitant]
  6. CO-AMOXICLAV [Concomitant]
  7. PIPERACILLIN AND TAZOBACTAM [Concomitant]
  8. MEROPENEM [Concomitant]
  9. PRIMAQUINE [Concomitant]
  10. CASPOFUNGIN [Concomitant]
  11. METHYLPREDNISOLONE [Concomitant]
  12. CIPROFLOXACIN [Concomitant]
  13. FUROSEMIDE [Concomitant]
  14. BISOPROLOL [Concomitant]
  15. OMEPRAZOLE [Concomitant]
  16. ALLOPURINOL [Concomitant]
  17. PARACETAMOL [Concomitant]
  18. LOPERAMIDE [Concomitant]
  19. POTASSIUM CLAVULANATE [Concomitant]

REACTIONS (9)
  - Acute respiratory distress syndrome [Fatal]
  - Respiratory failure [Fatal]
  - Dyspnoea [Not Recovered/Not Resolved]
  - Pulmonary hypertension [Not Recovered/Not Resolved]
  - CREST syndrome [Unknown]
  - General physical health deterioration [Unknown]
  - Lung infiltration [Not Recovered/Not Resolved]
  - Atrial fibrillation [Unknown]
  - Thrombocytopenia [Not Recovered/Not Resolved]
